FAERS Safety Report 7518551-X (Version None)
Quarter: 2011Q2

REPORT INFORMATION
  Report Type: 
  Country: None (occurrence: None)
  Receive Date: 20110523
  Receipt Date: 20110513
  Transmission Date: 20111010
  Serious: Yes (Death)
  Sender: FDA-Public Use
  Company Number: 920320

PATIENT
  Age: 46 Year
  Sex: Female

DRUGS (5)
  1. (GRANULOCYTE COLONY STIMULATING FACTOR) [Concomitant]
  2. CARBOPLATIN [Suspect]
     Indication: OVARIAN EPITHELIAL CANCER
     Dosage: 4500 MG,
  3. PACLITAXEL [Suspect]
     Indication: OVARIAN EPITHELIAL CANCER
     Dosage: 1800 MG,
  4. CYCLOPHOSPHAMIDE [Suspect]
     Indication: STEM CELL TRANSPLANT
     Dosage: 4 G/M^2,
  5. MELPHALAN HYDROCHLORIDE [Suspect]
     Indication: STEM CELL TRANSPLANT
     Dosage: 180 MQ/M^2,

REACTIONS (5)
  - THROMBOCYTOPENIA [None]
  - OVARIAN CANCER RECURRENT [None]
  - ACUTE MYELOID LEUKAEMIA [None]
  - BONE MARROW TUMOUR CELL INFILTRATION [None]
  - STEM CELL TRANSPLANT [None]
